FAERS Safety Report 8133021-6 (Version None)
Quarter: 2012Q1

REPORT INFORMATION
  Report Type: 
  Country: None (occurrence: None)
  Receive Date: 20120213
  Receipt Date: 20120206
  Transmission Date: 20120608
  Serious: Yes (Hospitalization, Other)
  Sender: FDA-Public Use
  Company Number: PHHY2010CA62187

PATIENT
  Sex: Female

DRUGS (2)
  1. ASPIRIN [Concomitant]
     Dosage: 81 MG
  2. EXJADE [Suspect]
     Indication: HAEMOLYTIC ANAEMIA
     Dosage: 1750 MG, QD
     Route: 048
     Dates: start: 20080701

REACTIONS (12)
  - DYSGEUSIA [None]
  - URINE COLOUR ABNORMAL [None]
  - BACK PAIN [None]
  - SERUM FERRITIN INCREASED [None]
  - PAIN IN EXTREMITY [None]
  - FATIGUE [None]
  - HAEMOGLOBIN DECREASED [None]
  - ABDOMINAL PAIN UPPER [None]
  - FALL [None]
  - MYALGIA [None]
  - OEDEMA PERIPHERAL [None]
  - ABDOMINAL DISCOMFORT [None]
